FAERS Safety Report 20070930 (Version 2)
Quarter: 2021Q4

REPORT INFORMATION
  Report Type: Spontaneous
  Country: US (occurrence: US)
  Receive Date: 20211115
  Receipt Date: 20211220
  Transmission Date: 20220304
  Serious: No
  Sender: FDA-Public Use
  Company Number: US-Kaleo, Inc.-2021KL000133

PATIENT
  Age: 17 Year
  Sex: Female

DRUGS (1)
  1. AUVI-Q [Suspect]
     Active Substance: EPINEPHRINE
     Indication: Anaphylactic reaction
     Dates: start: 20211013, end: 20211013

REACTIONS (6)
  - Wrong device used [Recovered/Resolved]
  - Drug ineffective [Recovered/Resolved]
  - Injection site haemorrhage [Recovered/Resolved]
  - Incorrect dose administered by device [Recovered/Resolved]
  - Device audio issue [Recovered/Resolved]
  - Device optical issue [Not Recovered/Not Resolved]

NARRATIVE: CASE EVENT DATE: 20211013
